FAERS Safety Report 19159561 (Version 1)
Quarter: 2021Q2

REPORT INFORMATION
  Report Type: Spontaneous
  Country: CA (occurrence: CA)
  Receive Date: 20210420
  Receipt Date: 20210420
  Transmission Date: 20210717
  Serious: Yes (Hospitalization, Other)
  Sender: FDA-Public Use
  Company Number: NVSC2021CA085755

PATIENT
  Age: 63 Year
  Sex: Male

DRUGS (91)
  1. INDAPAMIDE. [Suspect]
     Active Substance: INDAPAMIDE
     Dosage: 1 DF (1 EVERY 1 DAYS)
     Route: 065
  2. VARENICLINE TARTRATE [Suspect]
     Active Substance: VARENICLINE TARTRATE
     Indication: PRODUCT USED FOR UNKNOWN INDICATION
     Dosage: UNK
     Route: 065
  3. ENTRESTO [Suspect]
     Active Substance: SACUBITRIL\VALSARTAN
     Dosage: 1 DF, BID
     Route: 048
  4. ENTRESTO [Suspect]
     Active Substance: SACUBITRIL\VALSARTAN
     Dosage: 1 DF, BID
     Route: 048
  5. ENTRESTO [Suspect]
     Active Substance: SACUBITRIL\VALSARTAN
     Dosage: 1 DF, BID
     Route: 048
  6. SEEBRI BREEZHALER [Suspect]
     Active Substance: GLYCOPYRROLATE
     Indication: PRODUCT USED FOR UNKNOWN INDICATION
     Dosage: 1 DF(1 EVERY 1 DAYS) (30 DAYS)
     Route: 065
  7. SEEBRI BREEZHALER [Suspect]
     Active Substance: GLYCOPYRROLATE
     Dosage: 1 DF(1 EVERY 1 DAYS) (30 DAYS)
     Route: 055
  8. IPATROP [Suspect]
     Active Substance: IPRATROPIUM BROMIDE
     Indication: PRODUCT USED FOR UNKNOWN INDICATION
     Dosage: 20 MG (EVERY 1 DAYS)
     Route: 055
  9. FLUTICASONE. [Suspect]
     Active Substance: FLUTICASONE
     Indication: PRODUCT USED FOR UNKNOWN INDICATION
     Dosage: 2 DF (2 EVERY 1 DAYS)
     Route: 065
  10. INSPRA [Suspect]
     Active Substance: EPLERENONE
     Dosage: 50 MG (1 EVERY 1 DAY)
     Route: 048
  11. INSPRA [Suspect]
     Active Substance: EPLERENONE
     Dosage: 50 MG (1 EVERY 1 DAY)
     Route: 065
  12. INDAPAMIDE. [Suspect]
     Active Substance: INDAPAMIDE
     Indication: PRODUCT USED FOR UNKNOWN INDICATION
     Dosage: 1 DF (1 EVERY 1 DAYS)
     Route: 065
  13. INDAPAMIDE. [Suspect]
     Active Substance: INDAPAMIDE
     Dosage: 1 DF (1 EVERY 1 DAYS)
     Route: 065
  14. INDAPAMIDE. [Suspect]
     Active Substance: INDAPAMIDE
     Dosage: 1 DF (1 EVERY 1 DAYS)
     Route: 065
  15. INDAPAMIDE. [Suspect]
     Active Substance: INDAPAMIDE
     Dosage: 1 DF (1 EVERY 1 DAYS)
     Route: 065
  16. MEPOLIZUMAB [Suspect]
     Active Substance: MEPOLIZUMAB
     Indication: ASTHMA
     Dosage: 100 MG (1 EVERY 1 DAY)
     Route: 042
  17. MONTELUKAST SODIUM. [Suspect]
     Active Substance: MONTELUKAST SODIUM
     Dosage: 10 MG (1 EVERY 1 DAY)
     Route: 065
  18. SALBUTAMOL SULFATE [Suspect]
     Active Substance: ALBUTEROL SULFATE
     Dosage: 2.0 DF (50 DAYS)
     Route: 055
  19. SALBUTAMOL SULFATE [Suspect]
     Active Substance: ALBUTEROL SULFATE
     Dosage: 2.0 DF (50 DAYS)
     Route: 055
  20. TIOTROPIUM BROMIDE [Suspect]
     Active Substance: TIOTROPIUM BROMIDE
     Indication: PRODUCT USED FOR UNKNOWN INDICATION
     Dosage: 2.0 DF (1 EVERY 1 DAYS)
     Route: 065
  21. CICLESONIDE [Suspect]
     Active Substance: CICLESONIDE
     Dosage: 2 DF, BID (90.0 DAYS)
     Route: 055
  22. APO?PREDNISONE [Suspect]
     Active Substance: PREDNISONE
     Dosage: 50 MG, QD (5.0 DAYS)
     Route: 065
  23. CO AMLODIPINE [Suspect]
     Active Substance: AMLODIPINE BESYLATE
     Indication: PRODUCT USED FOR UNKNOWN INDICATION
     Dosage: 2.5 MG, QD
     Route: 065
  24. CYCLOBENZAPRINE. [Suspect]
     Active Substance: CYCLOBENZAPRINE
     Indication: PRODUCT USED FOR UNKNOWN INDICATION
     Dosage: 10 MG (3 EVERY 1 DAYS)
     Route: 065
  25. FORMOTEROL [Suspect]
     Active Substance: FORMOTEROL
     Indication: PRODUCT USED FOR UNKNOWN INDICATION
     Dosage: UNK (90.0 DAYS)
     Route: 055
  26. FORMOTEROL [Suspect]
     Active Substance: FORMOTEROL
     Dosage: 2 DF (2 EVERY 1 DAYS) (90.DAYS)
     Route: 055
  27. MONTELUKAST SODIUM. [Suspect]
     Active Substance: MONTELUKAST SODIUM
     Dosage: 10 MG (1 EVERY 1 DAY)
     Route: 048
  28. MONTELUKAST SODIUM. [Suspect]
     Active Substance: MONTELUKAST SODIUM
     Dosage: 10 MG (1 EVERY 1 DAY)
     Route: 048
  29. SALBUTAMOL SULFATE [Suspect]
     Active Substance: ALBUTEROL SULFATE
     Dosage: 2.0 DF (45 DAYS)
     Route: 055
  30. SALBUTAMOL SULFATE [Suspect]
     Active Substance: ALBUTEROL SULFATE
     Dosage: 2.0 DF (25 DAYS)
     Route: 055
  31. SALBUTAMOL SULFATE [Suspect]
     Active Substance: ALBUTEROL SULFATE
     Dosage: 2.0 DF (10 DAYS)
     Route: 055
  32. ENTRESTO [Suspect]
     Active Substance: SACUBITRIL\VALSARTAN
     Dosage: 1 DF, BID
     Route: 048
  33. APO?DOXY [Suspect]
     Active Substance: DOXYCYCLINE HYCLATE
     Dosage: 100 MG, BID (10.0 DAYS)
     Route: 065
  34. APO?DOXY [Suspect]
     Active Substance: DOXYCYCLINE HYCLATE
     Dosage: 100 MG, BID (10.0 DAYS)
     Route: 065
  35. APO?PREDNISONE [Suspect]
     Active Substance: PREDNISONE
     Dosage: 25 MG, QD (3.0 DAYS)
     Route: 065
  36. BREO ELLIPTA [Suspect]
     Active Substance: FLUTICASONE FUROATE\VILANTEROL TRIFENATATE
     Indication: PRODUCT USED FOR UNKNOWN INDICATION
     Dosage: 1 DF, QD
     Route: 055
  37. INSPRA [Suspect]
     Active Substance: EPLERENONE
     Dosage: 50 MG (1 EVERY 1 DAY)
     Route: 065
  38. PERINDOPRIL [Suspect]
     Active Substance: PERINDOPRIL
     Indication: PRODUCT USED FOR UNKNOWN INDICATION
     Dosage: 8.0 MG (1 EVERY 1 DAYS)
     Route: 065
  39. PREGABALIN. [Suspect]
     Active Substance: PREGABALIN
     Indication: PRODUCT USED FOR UNKNOWN INDICATION
     Dosage: 50 MG (2 EVERY 1 DAYS)
     Route: 048
  40. SALBUTAMOL SULFATE [Suspect]
     Active Substance: ALBUTEROL SULFATE
     Dosage: 2.0 DF (50 DAYS)
     Route: 055
  41. ENTRESTO [Suspect]
     Active Substance: SACUBITRIL\VALSARTAN
     Dosage: 1 DF, BID
     Route: 048
  42. BISOPROLOL [Suspect]
     Active Substance: BISOPROLOL
     Dosage: 2.5 MG, QD (7.0 DAYS)
     Route: 065
  43. SEEBRI BREEZHALER [Suspect]
     Active Substance: GLYCOPYRROLATE
     Dosage: 50 MG(1 EVERY 1 DAYS) (30 DAYS)
     Route: 055
  44. SEEBRI BREEZHALER [Suspect]
     Active Substance: GLYCOPYRROLATE
     Dosage: 50 MG(1 EVERY 1 DAYS) (30 DAYS)
     Route: 055
  45. APO?PREDNISONE [Suspect]
     Active Substance: PREDNISONE
     Dosage: 50 MG, QD (7.0 DAYS)
     Route: 065
  46. APO?PREDNISONE [Suspect]
     Active Substance: PREDNISONE
     Dosage: 50 MG, QD (4.0 DAYS)
     Route: 065
  47. APO?PREDNISONE [Suspect]
     Active Substance: PREDNISONE
     Dosage: 50 MG, QD (5.0 DAYS)
     Route: 065
  48. BREO ELLIPTA [Suspect]
     Active Substance: FLUTICASONE FUROATE\VILANTEROL TRIFENATATE
     Dosage: 1 DF, QD
     Route: 055
  49. INSPRA [Suspect]
     Active Substance: EPLERENONE
     Dosage: 50 MG (1 EVERY 1 DAY)
     Route: 048
  50. ENTRESTO [Suspect]
     Active Substance: SACUBITRIL\VALSARTAN
     Dosage: 1 DF, BID
     Route: 048
  51. ENTRESTO [Suspect]
     Active Substance: SACUBITRIL\VALSARTAN
     Dosage: 1 DF, BID
     Route: 048
  52. SEEBRI BREEZHALER [Suspect]
     Active Substance: GLYCOPYRROLATE
     Dosage: 50 MG(1 EVERY 1 DAYS) (30 DAYS)
     Route: 055
  53. CICLESONIDE [Suspect]
     Active Substance: CICLESONIDE
     Indication: PRODUCT USED FOR UNKNOWN INDICATION
     Dosage: 2 DF, BID (90.0 DAYS)
     Route: 055
  54. APO?DOXY [Suspect]
     Active Substance: DOXYCYCLINE HYCLATE
     Indication: PRODUCT USED FOR UNKNOWN INDICATION
     Dosage: 100 MG (5.0 DAYS)
     Route: 065
  55. APO?PREDNISONE [Suspect]
     Active Substance: PREDNISONE
     Dosage: 40 MG, QD (7.0 DAYS)
     Route: 065
  56. APO?PREDNISONE [Suspect]
     Active Substance: PREDNISONE
     Dosage: 50 MG, QD (3.0 DAYS)
     Route: 065
  57. BREO ELLIPTA [Suspect]
     Active Substance: FLUTICASONE FUROATE\VILANTEROL TRIFENATATE
     Dosage: 1 DF, QD
     Route: 055
  58. INSPRA [Suspect]
     Active Substance: EPLERENONE
     Dosage: 50 MG (1 EVERY 1 DAY)
     Route: 065
  59. IVABRADINE HYDROCHLORIDE [Suspect]
     Active Substance: IVABRADINE HYDROCHLORIDE
     Indication: PRODUCT USED FOR UNKNOWN INDICATION
     Dosage: 7.5 MG (2 EVERY 1 DAY)
     Route: 048
  60. KETOROLAC [Suspect]
     Active Substance: KETOROLAC TROMETHAMINE
     Indication: PRODUCT USED FOR UNKNOWN INDICATION
     Dosage: 10 MG(3 EVERY 1 DAYS)
     Route: 048
  61. MONTELUKAST SODIUM. [Suspect]
     Active Substance: MONTELUKAST SODIUM
     Dosage: 10 MG (1 EVERY 1 DAY)
     Route: 065
  62. SALBUTAMOL SULFATE [Suspect]
     Active Substance: ALBUTEROL SULFATE
     Dosage: 2.0 DF (50 DAYS)
     Route: 055
  63. MONTELUKAST [Suspect]
     Active Substance: MONTELUKAST SODIUM
     Indication: PRODUCT USED FOR UNKNOWN INDICATION
     Dosage: 10 MG (1 EVERY 1 DAYS) (30 DAYS)
     Route: 065
  64. TEVASPIRONE [Suspect]
     Active Substance: SPIRONOLACTONE
     Indication: PRODUCT USED FOR UNKNOWN INDICATION
     Dosage: 12.5 MG (1 EVERY 1 DAYS) (90.0 DAYS)
     Route: 065
  65. ENTRESTO [Suspect]
     Active Substance: SACUBITRIL\VALSARTAN
     Dosage: 1 DF, BID
     Route: 048
  66. SEEBRI BREEZHALER [Suspect]
     Active Substance: GLYCOPYRROLATE
     Dosage: 50 MG(1 EVERY 1 DAYS) (30 DAYS)
     Route: 055
  67. INSPRA [Suspect]
     Active Substance: EPLERENONE
     Indication: PRODUCT USED FOR UNKNOWN INDICATION
     Dosage: 50 MG (1 EVERY 1 DAY)
     Route: 065
  68. INDAPAMIDE. [Suspect]
     Active Substance: INDAPAMIDE
     Dosage: 1 DF (1 EVERY 1 DAYS)
     Route: 065
  69. MONTELUKAST SODIUM. [Suspect]
     Active Substance: MONTELUKAST SODIUM
     Dosage: 10 MG (1 EVERY 1 DAY)
     Route: 065
  70. MONTELUKAST SODIUM. [Suspect]
     Active Substance: MONTELUKAST SODIUM
     Dosage: 10 MG (1 EVERY 1 DAY)
     Route: 065
  71. SALBUTAMOL SULFATE [Suspect]
     Active Substance: ALBUTEROL SULFATE
     Indication: PRODUCT USED FOR UNKNOWN INDICATION
     Dosage: 2.0 DF (30 DAYS)
     Route: 055
  72. ENTRESTO [Suspect]
     Active Substance: SACUBITRIL\VALSARTAN
     Indication: PRODUCT USED FOR UNKNOWN INDICATION
     Dosage: 1 DF, BID
     Route: 048
  73. BISOPROLOL [Suspect]
     Active Substance: BISOPROLOL
     Indication: PRODUCT USED FOR UNKNOWN INDICATION
     Dosage: 0.25 MG, QD (30.0 DAYS)
     Route: 065
  74. APO?DOXY [Suspect]
     Active Substance: DOXYCYCLINE HYCLATE
     Dosage: 100 MG, BID (10.0 DAYS)
     Route: 048
  75. APO?PREDNISONE [Suspect]
     Active Substance: PREDNISONE
     Dosage: 5 MG (31.0 DAYS)
     Route: 065
  76. APO?PREDNISONE [Suspect]
     Active Substance: PREDNISONE
     Dosage: 25.0 MG, QD (3.0 DAYS)
     Route: 065
  77. FUROSEMIDE. [Suspect]
     Active Substance: FUROSEMIDE
     Indication: PRODUCT USED FOR UNKNOWN INDICATION
     Dosage: 20 MG (1 EVERY 1 DAY)
     Route: 065
  78. MONTELUKAST SODIUM. [Suspect]
     Active Substance: MONTELUKAST SODIUM
     Indication: PRODUCT USED FOR UNKNOWN INDICATION
     Dosage: 10 MG (1 EVERY 1 DAY)
     Route: 048
  79. MONTELUKAST SODIUM. [Suspect]
     Active Substance: MONTELUKAST SODIUM
     Dosage: 10 MG (1 EVERY 1 DAY)
     Route: 048
  80. AZITHROMYCIN ANHYDROUS. [Suspect]
     Active Substance: AZITHROMYCIN ANHYDROUS
     Indication: PRODUCT USED FOR UNKNOWN INDICATION
     Dosage: 250 MG
     Route: 065
  81. SALBUTAMOL SULFATE [Suspect]
     Active Substance: ALBUTEROL SULFATE
     Dosage: 2.0 DF (45 DAYS)
     Route: 055
  82. MONTELUKAST [Suspect]
     Active Substance: MONTELUKAST SODIUM
     Indication: PRODUCT USED FOR UNKNOWN INDICATION
     Dosage: 10 MG (1 EVERY 1 DAYS) (30 DAYS)
     Route: 065
  83. UMECLIDINIUM BROMIDE [Suspect]
     Active Substance: UMECLIDINIUM BROMIDE
     Indication: PRODUCT USED FOR UNKNOWN INDICATION
     Dosage: 1.0 DF (1 EVERY 1 DAYS)
     Route: 065
  84. ACETAMINOPHEN. [Suspect]
     Active Substance: ACETAMINOPHEN
     Indication: PRODUCT USED FOR UNKNOWN INDICATION
     Dosage: UNK
     Route: 048
  85. CICLESONIDE [Suspect]
     Active Substance: CICLESONIDE
     Dosage: 2 DF, BID (90.0 DAYS)
     Route: 055
  86. APO?DOXY [Suspect]
     Active Substance: DOXYCYCLINE HYCLATE
     Dosage: 100 MG, BID (10.0 DAYS)
     Route: 048
  87. APO?DOXY [Suspect]
     Active Substance: DOXYCYCLINE HYCLATE
     Dosage: 100 MG, BID (7.0 DAYS)
     Route: 048
  88. APO?PREDNISONE [Suspect]
     Active Substance: PREDNISONE
     Indication: PRODUCT USED FOR UNKNOWN INDICATION
     Dosage: 5 MG (26.0 DAYS)
     Route: 065
  89. APO?PREDNISONE [Suspect]
     Active Substance: PREDNISONE
     Dosage: 5 MG (35.0 DAYS)
     Route: 065
  90. APO?PREDNISONE [Suspect]
     Active Substance: PREDNISONE
     Dosage: 25 MG, QD (3.0 DAYS)
     Route: 065
  91. BREO ELLIPTA [Suspect]
     Active Substance: FLUTICASONE FUROATE\VILANTEROL TRIFENATATE
     Dosage: 1 DF, QD
     Route: 055

REACTIONS (14)
  - Ischaemic cardiomyopathy [Unknown]
  - Cardiomyopathy [Unknown]
  - Dyspnoea [Unknown]
  - Asthma-chronic obstructive pulmonary disease overlap syndrome [Unknown]
  - Asthma [Unknown]
  - Breath sounds abnormal [Unknown]
  - Bronchitis [Unknown]
  - Bronchial hyperreactivity [Unknown]
  - Obstructive airways disorder [Unknown]
  - Pulmonary function test abnormal [Unknown]
  - Cardiac disorder [Unknown]
  - Drug ineffective [Unknown]
  - Eosinophilia [Unknown]
  - Drug intolerance [Unknown]
